FAERS Safety Report 7326805-5 (Version None)
Quarter: 2011Q1

REPORT INFORMATION
  Report Type: 
  Country: None (occurrence: None)
  Receive Date: 20110302
  Receipt Date: 20110120
  Transmission Date: 20110831
  Serious: No
  Sender: FDA-Public Use
  Company Number: US-BAYER-2011-007421

PATIENT
  Sex: Female
  Weight: 82 kg

DRUGS (4)
  1. ALEVE (CAPLET) [Suspect]
     Dosage: ONE OR TWO A WEEK AS NEEDED
     Route: 048
     Dates: start: 20100101
  2. BLOOD PRESSURE MEDICATION (NOS) [Concomitant]
  3. ASPIRIN [Concomitant]
  4. CHOLESTEROL- AND TRIGLYCERIDE REDUCERS [Concomitant]

REACTIONS (4)
  - DIZZINESS [None]
  - PALPITATIONS [None]
  - ASTHENIA [None]
  - BLOOD GLUCOSE INCREASED [None]
